FAERS Safety Report 5607779-1 (Version None)
Quarter: 2008Q1

REPORT INFORMATION
  Report Type: 
  Country: None (occurrence: None)
  Receive Date: 20080125
  Receipt Date: 20080117
  Transmission Date: 20080703
  Serious: Yes (Disabling)
  Sender: FDA-Public Use
  Company Number: 2008-00275

PATIENT
  Age: 90 Year
  Sex: Male

DRUGS (1)
  1. TRELSTAR LA (WITH CLIP'N'JECT) (WATSON LABORATORIES)(TRIPTORELIN PAMOA [Suspect]
     Indication: PROSTATE CANCER
     Dosage: 11.25 MG, Q 3 MONTHS X 2 DOSES, INTRAMUSCULAR
     Route: 030
     Dates: start: 20070721, end: 20071223

REACTIONS (1)
  - OPTIC ISCHAEMIC NEUROPATHY [None]
